FAERS Safety Report 10149700 (Version 1)
Quarter: 2014Q2

REPORT INFORMATION
  Report Type: Spontaneous
  Country: FR (occurrence: FR)
  Receive Date: 20140502
  Receipt Date: 20140502
  Transmission Date: 20141212
  Serious: Yes (Hospitalization)
  Sender: FDA-Public Use
  Company Number: FR-JNJFOC-20140418678

PATIENT
  Age: 82 Year
  Sex: Male

DRUGS (15)
  1. XARELTO [Suspect]
     Indication: CEREBROVASCULAR ACCIDENT PROPHYLAXIS
     Route: 048
     Dates: end: 20131017
  2. XARELTO [Suspect]
     Indication: CEREBROVASCULAR ACCIDENT PROPHYLAXIS
     Route: 048
  3. XARELTO [Suspect]
     Indication: ATRIAL FIBRILLATION
     Route: 048
     Dates: end: 20131017
  4. XARELTO [Suspect]
     Indication: ATRIAL FIBRILLATION
     Route: 048
  5. DOMPERIDONE [Concomitant]
     Route: 065
  6. NEBIVOLOL [Concomitant]
     Dosage: 5
     Route: 065
  7. LYRICA [Concomitant]
     Route: 065
  8. PANTOPRAZOLE [Concomitant]
     Dosage: 20
     Route: 065
  9. GAVISCON ADVANCE [Concomitant]
     Route: 065
  10. ZOLPIDEM [Concomitant]
     Route: 065
  11. ROTIGOTINE [Concomitant]
     Dosage: 2
     Route: 065
  12. ALLOPURINOL [Concomitant]
     Route: 065
  13. LEVOTHYROX [Concomitant]
     Dosage: 50
     Route: 065
  14. VALSARTAN [Concomitant]
     Dosage: 80
     Route: 065
  15. KARDEGIC [Concomitant]
     Dosage: 5
     Route: 065

REACTIONS (1)
  - Anaemia [Recovered/Resolved]
